FAERS Safety Report 5612459-2 (Version None)
Quarter: 2008Q1

REPORT INFORMATION
  Report Type: 
  Country: None (occurrence: None)
  Receive Date: 20080129
  Receipt Date: 20080117
  Transmission Date: 20080703
  Serious: Yes (Death, Other)
  Sender: FDA-Public Use
  Company Number: CHPA2008US01157

PATIENT
  Age: 31 Year
  Sex: Male

DRUGS (1)
  1. NODOZ (NCH)(CAFFEINE) CAPLET [Suspect]
     Indication: SOMNOLENCE
     Dosage: 12000 MG, ONCE/ SINGLE, ORAL
     Route: 048
     Dates: start: 20070308

REACTIONS (7)
  - AGITATION [None]
  - DIZZINESS [None]
  - DRUG TOXICITY [None]
  - EXPIRED DRUG ADMINISTERED [None]
  - MALAISE [None]
  - OVERDOSE [None]
  - VOMITING [None]
